FAERS Safety Report 24688411 (Version 3)
Quarter: 2025Q1

REPORT INFORMATION
  Report Type: Report from Study
  Country: US (occurrence: US)
  Receive Date: 20241202
  Receipt Date: 20250122
  Transmission Date: 20250409
  Serious: Yes (Other)
  Sender: ABBVIE
  Company Number: US-ABBVIE-5959465

PATIENT
  Age: 28 Year
  Sex: Female
  Weight: 94 kg

DRUGS (4)
  1. SKYRIZI [Suspect]
     Active Substance: RISANKIZUMAB-RZAA
     Indication: Colitis ulcerative
     Dosage: UNKNOWN
     Route: 042
     Dates: start: 20240913
  2. CELEXA [Concomitant]
     Active Substance: CITALOPRAM HYDROBROMIDE
     Indication: Depression
  3. HYDROXYZINE [Concomitant]
     Active Substance: HYDROXYZINE HYDROCHLORIDE
     Indication: Anxiety
  4. PREDNISONE [Concomitant]
     Active Substance: PREDNISONE
     Indication: Product used for unknown indication

REACTIONS (14)
  - Haematochezia [Unknown]
  - Menstruation irregular [Recovering/Resolving]
  - Allergic cough [Recovered/Resolved]
  - Abdominal pain [Recovering/Resolving]
  - Diarrhoea [Unknown]
  - Anaemia [Not Recovered/Not Resolved]
  - Urticaria [Recovering/Resolving]
  - Drug ineffective [Recovering/Resolving]
  - Dyschezia [Unknown]
  - Anaemia [Recovered/Resolved]
  - Blood iron decreased [Unknown]
  - Multiple allergies [Recovered/Resolved]
  - Rash [Recovering/Resolving]
  - Skin laceration [Recovering/Resolving]

NARRATIVE: CASE EVENT DATE: 20240101
